FAERS Safety Report 8816756 (Version 1)
Quarter: 2012Q4

REPORT INFORMATION
  Report Type: Spontaneous
  Country: US (occurrence: None)
  Receive Date: 20121001
  Receipt Date: 20121001
  Transmission Date: 20130627
  Serious: Yes (Death)
  Sender: FDA-Public Use
  Company Number: 2012-486

PATIENT
  Age: 62 Year
  Sex: Male

DRUGS (1)
  1. FAZACLO [Suspect]
     Indication: SCHIZOPHRENIA
     Route: 048
     Dates: start: 20111215, end: 20120828

REACTIONS (1)
  - Myocardial infarction [None]
